FAERS Safety Report 7202161-8 (Version None)
Quarter: 2010Q4

REPORT INFORMATION
  Report Type: 
  Country: None (occurrence: None)
  Receive Date: 20101229
  Receipt Date: 20101216
  Transmission Date: 20110411
  Serious: Yes (Other)
  Sender: FDA-Public Use
  Company Number: PHHY2010FR86763

PATIENT
  Sex: Female

DRUGS (1)
  1. GLEEVEC [Suspect]
     Dosage: 400 MG, QD
     Route: 048
     Dates: start: 20100928, end: 20101001

REACTIONS (4)
  - C-REACTIVE PROTEIN INCREASED [None]
  - ECZEMA [None]
  - INFLAMMATION [None]
  - PYREXIA [None]
